FAERS Safety Report 5304339-7 (Version None)
Quarter: 2007Q2

REPORT INFORMATION
  Report Type: 
  Country: None (occurrence: None)
  Receive Date: 20070423
  Receipt Date: 20070416
  Transmission Date: 20071010
  Serious: Yes (Hospitalization)
  Sender: FDA-Public Use
  Company Number: US-BAYER-200711017BWH

PATIENT
  Age: 63 Year
  Sex: Male
  Weight: 84 kg

DRUGS (8)
  1. NEXAVAR [Suspect]
     Indication: RENAL CELL CARCINOMA STAGE UNSPECIFIED
     Dosage: TOTAL DAILY DOSE: 800 MG  UNIT DOSE: 200 MG
     Route: 048
     Dates: start: 20070122, end: 20070206
  2. ATENOLOL [Concomitant]
  3. ENALAPRIL [Concomitant]
  4. XANAX [Concomitant]
  5. SPIRONOLACTONE [Concomitant]
  6. PRILOSEC [Concomitant]
  7. FLOMAX [Concomitant]
  8. MULTI-VITAMIN [Concomitant]

REACTIONS (7)
  - ACUTE MYOCARDIAL INFARCTION [None]
  - ARTERIAL STENOSIS [None]
  - CHEST PAIN [None]
  - EJECTION FRACTION ABNORMAL [None]
  - HAEMATOMA [None]
  - ISCHAEMIC CARDIOMYOPATHY [None]
  - VASCULAR PSEUDOANEURYSM [None]
